FAERS Safety Report 4598218-0 (Version None)
Quarter: 2005Q1

REPORT INFORMATION
  Report Type: 
  Country: None (occurrence: None)
  Receive Date: 20050301
  Receipt Date: 20050301
  Transmission Date: 20050727
  Serious: Yes (Hospitalization)
  Sender: FDA-Public Use
  Company Number: None

PATIENT
  Sex: Female
  Weight: 84.369 kg

DRUGS (1)
  1. LOVENOX [Suspect]
     Indication: THROMBOSIS PROPHYLAXIS
     Dosage: 75 MG   EVERY 12 HOURS   SUBCUTANEO
     Route: 058
     Dates: start: 20040607, end: 20040612

REACTIONS (7)
  - ABDOMINAL PAIN [None]
  - HAEMOGLOBIN ABNORMAL [None]
  - PELVIC HAEMATOMA [None]
  - POST PROCEDURAL COMPLICATION [None]
  - SURGICAL PROCEDURE REPEATED [None]
  - SWELLING [None]
  - THROMBOSIS [None]
